FAERS Safety Report 9144150 (Version 3)
Quarter: 2013Q4

REPORT INFORMATION
  Report Type: Spontaneous
  Country: US (occurrence: US)
  Receive Date: 20130306
  Receipt Date: 20131112
  Transmission Date: 20140711
  Serious: Yes (Hospitalization, Other)
  Sender: FDA-Public Use
  Company Number: US-009507513-1303USA002310

PATIENT
  Sex: Female

DRUGS (5)
  1. FOSAMAX [Suspect]
     Indication: OSTEOPOROSIS
     Dosage: 70 MG, QW
     Route: 048
     Dates: start: 2000
  2. FOSAMAX [Suspect]
     Indication: OSTEOPENIA
  3. ALENDRONATE SODIUM [Suspect]
     Indication: OSTEOPOROSIS
     Dosage: 70 MG, UNK
     Dates: start: 200802, end: 201003
  4. CALCIUM (UNSPECIFIED) [Concomitant]
     Indication: OSTEOPENIA
  5. VITAMIN D (UNSPECIFIED) [Concomitant]
     Indication: OSTEOPENIA

REACTIONS (14)
  - Femur fracture [Unknown]
  - Internal fixation of fracture [Unknown]
  - Femur fracture [Unknown]
  - Intramedullary rod insertion [Unknown]
  - Surgery [Unknown]
  - Open reduction of fracture [Unknown]
  - Femur fracture [Unknown]
  - Forearm fracture [Unknown]
  - Low turnover osteopathy [Unknown]
  - Spinal disorder [Unknown]
  - Fracture nonunion [Not Recovered/Not Resolved]
  - Medical device complication [Unknown]
  - Pain in extremity [Unknown]
  - Arthralgia [Unknown]
